FAERS Safety Report 10596253 (Version 1)
Quarter: 2014Q4

REPORT INFORMATION
  Report Type: Spontaneous
  Country: US (occurrence: US)
  Receive Date: 20141120
  Receipt Date: 20141120
  Transmission Date: 20150529
  Serious: Yes (Hospitalization, Other)
  Sender: FDA-Public Use
  Company Number: US-PFIZER INC-2014315457

PATIENT
  Age: 51 Year
  Sex: Male

DRUGS (2)
  1. ATORVASTATIN CALCIUM. [Suspect]
     Active Substance: ATORVASTATIN CALCIUM
     Indication: BLOOD CHOLESTEROL INCREASED
     Dosage: 40 MG, 1X/DAY
     Dates: start: 20141001, end: 201410
  2. AMLODIPINE BESILATE/ENALAPRIL MALEATE [Concomitant]
     Indication: HYPERTENSION
     Dosage: 10/40 (UNSPECIFED UNITS), DAILY
     Dates: start: 2011

REACTIONS (4)
  - Hemiplegia [Unknown]
  - Rhabdomyolysis [Recovering/Resolving]
  - Feeling abnormal [Recovered/Resolved]
  - Spinal cord compression [Unknown]

NARRATIVE: CASE EVENT DATE: 201410
